FAERS Safety Report 11629620 (Version 1)
Quarter: 2015Q4

REPORT INFORMATION
  Report Type: Spontaneous
  Country: JP (occurrence: JP)
  Receive Date: 20151014
  Receipt Date: 20151014
  Transmission Date: 20160304
  Serious: Yes (Hospitalization)
  Sender: FDA-Public Use
  Company Number: JP-UCBSA-2015031828

PATIENT
  Age: 87 Year
  Sex: Female

DRUGS (7)
  1. KEPPRA [Suspect]
     Active Substance: LEVETIRACETAM
     Dosage: 750 MG, ONCE DAILY (QD)
     Route: 048
     Dates: start: 20150921
  2. NOBELBAR [Suspect]
     Active Substance: PHENOBARBITAL SODIUM
     Indication: EPILEPSY
     Dosage: 750 MG DAILY
     Route: 042
     Dates: start: 20150903, end: 20150903
  3. ALEVIATIN [Suspect]
     Active Substance: PHENYTOIN SODIUM
     Indication: EPILEPSY
     Dosage: 250 MG DAILY
     Route: 048
     Dates: start: 20150905, end: 20150907
  4. CERCINE [Suspect]
     Active Substance: DIAZEPAM
     Indication: EPILEPSY
     Dosage: 10 MG DAILY
     Route: 042
     Dates: start: 20150903, end: 20150903
  5. ALEVIATIN [Suspect]
     Active Substance: PHENYTOIN SODIUM
     Indication: EPILEPSY
     Dosage: 500 MG DAILY
     Route: 042
     Dates: start: 20150903, end: 20150903
  6. KEPPRA [Suspect]
     Active Substance: LEVETIRACETAM
     Indication: EPILEPSY
     Dosage: 1500 MG, ONCE DAILY (QD)
     Route: 048
     Dates: start: 20150903, end: 201509
  7. FOSPHENYTOIN SODIUM. [Suspect]
     Active Substance: FOSPHENYTOIN SODIUM
     Indication: EPILEPSY
     Dosage: 600 MG DAILY
     Route: 042
     Dates: start: 20150903, end: 20150904

REACTIONS (2)
  - Hepatic function abnormal [Recovered/Resolved]
  - White blood cell count increased [Not Recovered/Not Resolved]

NARRATIVE: CASE EVENT DATE: 20150903
